FAERS Safety Report 10936747 (Version 1)
Quarter: 2015Q1

REPORT INFORMATION
  Report Type: Spontaneous
  Country: US (occurrence: None)
  Receive Date: 20150320
  Receipt Date: 20150320
  Transmission Date: 20150721
  Serious: Yes (Hospitalization, Other)
  Sender: FDA-Public Use
  Company Number: None

PATIENT
  Age: 31 Year
  Sex: Female
  Weight: 48.5 kg

DRUGS (15)
  1. SUMATRIPTAN. [Concomitant]
     Active Substance: SUMATRIPTAN
  2. DEXAMETHASONE. [Concomitant]
     Active Substance: DEXAMETHASONE
  3. LORAZEPAM. [Concomitant]
     Active Substance: LORAZEPAM
  4. MORPHINE [Concomitant]
     Active Substance: MORPHINE
  5. THIOTEPA. [Suspect]
     Active Substance: THIOTEPA
     Indication: METASTASES TO MENINGES
     Dosage: 6 MG IN 10ML OF NS ONCE INTRATHECAL VIA OMMYA RESERVOIR
     Route: 037
     Dates: start: 20140811
  6. OMEPRAZOLE. [Concomitant]
     Active Substance: OMEPRAZOLE
  7. TOPOTECAN [Concomitant]
     Active Substance: TOPOTECAN\TOPOTECAN HYDROCHLORIDE
  8. HYDROMORPHONE [Concomitant]
     Active Substance: HYDROMORPHONE
  9. CALCIUM CARBONATE -VITAMIN D3 [Concomitant]
  10. LETROZOLE. [Concomitant]
     Active Substance: LETROZOLE
  11. THIOTEPA. [Suspect]
     Active Substance: THIOTEPA
     Indication: BREAST CANCER METASTATIC
     Dosage: 6 MG IN 10ML OF NS ONCE INTRATHECAL VIA OMMYA RESERVOIR
     Route: 037
     Dates: start: 20140811
  12. NORCO [Concomitant]
     Active Substance: ACETAMINOPHEN\HYDROCODONE BITARTRATE
  13. PROCHLORPERAZINE. [Suspect]
     Active Substance: PROCHLORPERAZINE
  14. LIDOCAIN-PRILOCAINE [Concomitant]
  15. DRONABINOL. [Concomitant]
     Active Substance: DRONABINOL

REACTIONS (1)
  - Meningitis chemical [None]

NARRATIVE: CASE EVENT DATE: 20140811
